FAERS Safety Report 5128355-3 (Version None)
Quarter: 2006Q4

REPORT INFORMATION
  Report Type: 
  Country: None (occurrence: None)
  Receive Date: 20061011
  Receipt Date: 20050530
  Transmission Date: 20070319
  Serious: Yes (Death)
  Sender: FDA-Public Use
  Company Number: 2005081910

PATIENT
  Age: 60 Year
  Sex: Male

DRUGS (8)
  1. ALPRAZOLAM [Suspect]
     Indication: ILL-DEFINED DISORDER
     Dosage: 1 MG, ORAL
     Route: 048
  2. ZOPICLONE (ZOPICLONE) [Suspect]
     Indication: ILL-DEFINED DISORDER
     Dosage: 5 MG, ORAL
     Route: 048
  3. NOZINAN (LEVOMEPROMAZINE) [Suspect]
     Indication: ILL-DEFINED DISORDER
     Dosage: 25 MG, ORAL
     Route: 048
  4. KLIOGEST (ESTRADIOL, NORETHISTERONE ACETATE) [Suspect]
     Indication: MENOPAUSAL SYMPTOMS
     Dosage: ORAL
     Route: 048
     Dates: start: 19990914, end: 20050125
  5. CARBAMAZEPINE [Suspect]
     Indication: ILL-DEFINED DISORDER
     Dosage: 200 MG, ORAL
     Route: 048
     Dates: start: 20010226, end: 20050125
  6. REMERON [Suspect]
     Indication: ILL-DEFINED DISORDER
  7. SPIRIVA [Concomitant]
  8. BUVENTOL (SALBUTAMOL SULFATE) [Concomitant]

REACTIONS (4)
  - ARTERIOSCLEROSIS [None]
  - MALIGNANT URINARY TRACT NEOPLASM [None]
  - RENAL ONCOCYTOMA [None]
  - VENOUS THROMBOSIS [None]
